FAERS Safety Report 8822720 (Version 2)
Quarter: 2014Q3

REPORT INFORMATION
  Report Type: Report from Study
  Country: US (occurrence: US)
  Receive Date: 20121003
  Receipt Date: 20140912
  Transmission Date: 20150326
  Serious: Yes (Hospitalization)
  Sender: FDA-Public Use
  Company Number: US-ROCHE-1115308

PATIENT
  Age: 63 Year
  Sex: Male

DRUGS (2)
  1. RITUXAN [Suspect]
     Active Substance: RITUXIMAB
     Indication: CHRONIC LYMPHOCYTIC LEUKAEMIA
     Route: 065
     Dates: start: 19980209
  2. CISPLATIN. [Concomitant]
     Active Substance: CISPLATIN

REACTIONS (4)
  - No therapeutic response [Unknown]
  - Thrombosis [Unknown]
  - Oedema peripheral [Unknown]
  - Arrhythmia [Unknown]

NARRATIVE: CASE EVENT DATE: 19990417
